FAERS Safety Report 7382231-4 (Version None)
Quarter: 2011Q1

REPORT INFORMATION
  Report Type: 
  Country: None (occurrence: None)
  Receive Date: 20110329
  Receipt Date: 20110321
  Transmission Date: 20110831
  Serious: Yes (Hospitalization)
  Sender: FDA-Public Use
  Company Number: US-B.I. PHARMACEUTICALS,INC./RIDGEFIELD-2010-BP-13964BP

PATIENT
  Age: 83 Year
  Sex: Male
  Weight: 95.71 kg

DRUGS (2)
  1. PRADAXA [Suspect]
     Indication: ATRIAL FIBRILLATION
     Dosage: 300 MG
     Dates: start: 20101121, end: 20101125
  2. DIGOXIN [Concomitant]

REACTIONS (5)
  - HAEMORRHAGE [None]
  - HAEMATOMA [None]
  - URINARY TRACT INFECTION [None]
  - RETROPERITONEAL HAEMATOMA [None]
  - PRESYNCOPE [None]
